FAERS Safety Report 23536072 (Version 3)
Quarter: 2024Q1

REPORT INFORMATION
  Report Type: Spontaneous
  Country: GB (occurrence: GB)
  Receive Date: 20240219
  Receipt Date: 20240312
  Transmission Date: 20240409
  Serious: Yes (Other)
  Sender: FDA-Public Use
  Company Number: GB-JNJFOC-20240145133

PATIENT
  Age: 44 Year
  Sex: Male

DRUGS (7)
  1. ARANESP [Suspect]
     Active Substance: DARBEPOETIN ALFA
     Indication: Nephrogenic anaemia
     Dosage: 60 MICROGRAM, QWK
     Route: 042
     Dates: end: 20220205
  2. ARANESP [Suspect]
     Active Substance: DARBEPOETIN ALFA
     Dosage: 80 MICROGRAM, QWK
     Route: 042
     Dates: start: 20220205, end: 20220505
  3. ARANESP [Suspect]
     Active Substance: DARBEPOETIN ALFA
     Dosage: 120 MICROGRAM, QWK (LAST ADMINISTRATION: 08-MAY-2023)
     Route: 042
     Dates: start: 20220505, end: 20230508
  4. EPREX [Suspect]
     Active Substance: ERYTHROPOIETIN
     Indication: Nephrogenic anaemia
     Dosage: 10000 INTERNATIONAL UNIT 1 TIME EVERY .33 WEEKS
     Route: 042
     Dates: start: 20230508
  5. EPREX [Suspect]
     Active Substance: ERYTHROPOIETIN
     Dosage: 10000 INTERNATIONAL UNIT 1 TIME EVERY .33 WEEKS
     Route: 042
     Dates: start: 20240122
  6. MYCOPHENOLATE MOFETIL [Concomitant]
     Active Substance: MYCOPHENOLATE MOFETIL
     Dosage: UNK
     Route: 065
     Dates: start: 20110415
  7. TACROLIMUS [Concomitant]
     Active Substance: TACROLIMUS
     Dosage: UNK
     Route: 065
     Dates: start: 20110415

REACTIONS (3)
  - Hyperparathyroidism [Unknown]
  - Drug ineffective [Unknown]
  - Anti-erythropoietin antibody negative [Recovered/Resolved]

NARRATIVE: CASE EVENT DATE: 20240129
